FAERS Safety Report 4895930-0 (Version None)
Quarter: 2006Q1

REPORT INFORMATION
  Report Type: 
  Country: None (occurrence: None)
  Receive Date: 20060125
  Receipt Date: 20050113
  Transmission Date: 20060701
  Serious: Yes (Other)
  Sender: FDA-Public Use
  Company Number: 2006JP000094

PATIENT
  Age: 8 Year
  Sex: Male

DRUGS (3)
  1. PROGRAF [Suspect]
     Indication: LIVER TRANSPLANT
  2. AZATHIOPRINE [Concomitant]
  3. PREDNISONE (PREDNISOLONE) [Concomitant]

REACTIONS (7)
  - ASCITES [None]
  - AUTOIMMUNE HEPATITIS [None]
  - COMPLICATIONS OF TRANSPLANT SURGERY [None]
  - CYTOMEGALOVIRUS INFECTION [None]
  - HEPATIC VEIN STENOSIS [None]
  - HYPOGAMMAGLOBULINAEMIA [None]
  - SEPSIS [None]
